FAERS Safety Report 8459372-3 (Version None)
Quarter: 2012Q2

REPORT INFORMATION
  Report Type: 
  Country: None (occurrence: None)
  Receive Date: 20120622
  Receipt Date: 20120616
  Transmission Date: 20120825
  Serious: Yes (Other)
  Sender: FDA-Public Use
  Company Number: US-JNJFOC-20120604607

PATIENT
  Sex: Male
  Weight: 57.61 kg

DRUGS (8)
  1. USTEKINUMAB [Suspect]
     Route: 058
     Dates: start: 20101101
  2. VANOS [Concomitant]
     Route: 061
     Dates: start: 20090325
  3. USTEKINUMAB [Suspect]
     Route: 058
     Dates: start: 20091125
  4. CORTICOSTEROIDS, DERMATOLOGICAL PREPARATIONS [Concomitant]
     Route: 061
  5. USTEKINUMAB [Suspect]
     Indication: PSORIASIS
     Route: 058
     Dates: start: 20120421
  6. CLOBEX [Concomitant]
     Dates: start: 20090325
  7. TACLONEX [Concomitant]
     Route: 061
     Dates: start: 20090824
  8. VITAMIN D [Concomitant]
     Route: 061

REACTIONS (1)
  - PULMONARY TUBERCULOSIS [None]
